FAERS Safety Report 14411523 (Version 4)
Quarter: 2022Q1

REPORT INFORMATION
  Report Type: Spontaneous
  Country: GB (occurrence: GB)
  Receive Date: 20180119
  Receipt Date: 20220321
  Transmission Date: 20220423
  Serious: Yes (Other)
  Sender: FDA-Public Use
  Company Number: None

PATIENT
  Sex: Female

DRUGS (3)
  1. ZYRTEC [Interacting]
     Active Substance: CETIRIZINE HYDROCHLORIDE
     Indication: Hypersensitivity
     Dosage: UNK UNK, UNKNOWN FREQ.
     Route: 065
  2. MIRABEGRON [Interacting]
     Active Substance: MIRABEGRON
     Indication: Hypertonic bladder
     Dosage: UNK UNK, UNKNOWN FREQ.
     Route: 065
     Dates: start: 20171212, end: 20171229
  3. MIRABEGRON [Interacting]
     Active Substance: MIRABEGRON
     Dosage: UNK UNK, UNKNOWN FREQ.
     Route: 065
     Dates: start: 20171212, end: 20171229

REACTIONS (5)
  - Blood pressure decreased [Recovered/Resolved]
  - Drug interaction [Unknown]
  - Malaise [Unknown]
  - Dizziness [Unknown]
  - Insomnia [Recovering/Resolving]

NARRATIVE: CASE EVENT DATE: 20171201
